FAERS Safety Report 17637135 (Version 2)
Quarter: 2020Q2

REPORT INFORMATION
  Report Type: Report from Study
  Country: AR (occurrence: AR)
  Receive Date: 20200407
  Receipt Date: 20200415
  Transmission Date: 20200713
  Serious: Yes (Life-Threatening, Hospitalization)
  Sender: FDA-Public Use
  Company Number: NVSC2020AR086685

PATIENT
  Age: 23 Year
  Sex: Male

DRUGS (4)
  1. REVOLADE [Suspect]
     Active Substance: ELTROMBOPAG
     Dosage: 25 MG, BID
     Route: 048
     Dates: start: 20200310
  2. MEPREDNISONE [Concomitant]
     Active Substance: MEPREDNISONE
     Indication: PRODUCT USED FOR UNKNOWN INDICATION
     Dosage: 40 MG
     Route: 065
  3. REVOLADE [Suspect]
     Active Substance: ELTROMBOPAG
     Indication: IMMUNE THROMBOCYTOPENIA
     Dosage: 25 MG, BID
     Route: 048
     Dates: start: 201911
  4. REVOLADE [Suspect]
     Active Substance: ELTROMBOPAG
     Dosage: 25 MG, BID
     Route: 048

REACTIONS (5)
  - Product dose omission [Unknown]
  - Platelet count decreased [Recovered/Resolved]
  - Toothache [Unknown]
  - Overweight [Unknown]
  - Platelet count decreased [Not Recovered/Not Resolved]

NARRATIVE: CASE EVENT DATE: 201912
